FAERS Safety Report 11977497 (Version 3)
Quarter: 2017Q1

REPORT INFORMATION
  Report Type: Report from Study
  Country: US (occurrence: US)
  Receive Date: 20160129
  Receipt Date: 20170331
  Transmission Date: 20170428
  Serious: Yes (Death, Other)
  Sender: FDA-Public Use
  Company Number: US-009507513-1601USA009973

PATIENT
  Age: 67 Year
  Sex: Male
  Weight: 87.08 kg

DRUGS (1)
  1. KEYTRUDA [Suspect]
     Active Substance: PEMBROLIZUMAB
     Indication: BLADDER CANCER
     Dosage: 180 MG, Q3W
     Route: 042
     Dates: start: 20151117, end: 20151210

REACTIONS (2)
  - Malignant neoplasm progression [Fatal]
  - Blood bilirubin increased [Fatal]

NARRATIVE: CASE EVENT DATE: 20151231
